FAERS Safety Report 7386009-7 (Version None)
Quarter: 2011Q1

REPORT INFORMATION
  Report Type: 
  Country: None (occurrence: None)
  Receive Date: 20110331
  Receipt Date: 20110322
  Transmission Date: 20110831
  Serious: Yes (Hospitalization)
  Sender: FDA-Public Use
  Company Number: US-PERRIGO-11US002412

PATIENT
  Age: 35 Year
  Sex: Male

DRUGS (1)
  1. IBUPROFEN [Suspect]
     Indication: BACK PAIN
     Dosage: OVER 30 TABLETS/DAY
     Route: 048

REACTIONS (4)
  - HYPOKALAEMIA [None]
  - METABOLIC ACIDOSIS [None]
  - INTENTIONAL OVERDOSE [None]
  - PARALYSIS [None]
